FAERS Safety Report 9147606 (Version 1)
Quarter: 2013Q1

REPORT INFORMATION
  Report Type: Spontaneous
  Country: RO (occurrence: RO)
  Receive Date: 20130307
  Receipt Date: 20130307
  Transmission Date: 20140127
  Serious: Yes (Other)
  Sender: FDA-Public Use
  Company Number: RO-ASTRAZENECA-2013SE13341

PATIENT
  Age: 68 Year
  Sex: Female
  Weight: 70 kg

DRUGS (3)
  1. VIMOVO [Suspect]
     Indication: OSTEOARTHRITIS
     Dosage: 1 TAB/DAY
     Route: 048
     Dates: start: 20130225, end: 20130225
  2. ENAP [Concomitant]
     Indication: HYPERTENSION
     Route: 048
  3. TERTENSIF [Concomitant]
     Indication: HYPERTENSION
     Route: 048

REACTIONS (4)
  - Palpitations [Recovered/Resolved]
  - Tremor [Recovered/Resolved]
  - Blood pressure increased [Recovered/Resolved]
  - Hyperhidrosis [Recovered/Resolved]
